FAERS Safety Report 26219128 (Version 1)
Quarter: 2025Q4

REPORT INFORMATION
  Report Type: Spontaneous
  Country: US (occurrence: US)
  Receive Date: 20251231
  Receipt Date: 20251231
  Transmission Date: 20260117
  Serious: No
  Sender: ORPHAZYME
  Company Number: US-ZEVRA DENMARK A/S-ORP-000577

PATIENT
  Sex: Female

DRUGS (1)
  1. MIPLYFFA [Suspect]
     Active Substance: ARIMOCLOMOL CITRATE
     Indication: Product used for unknown indication
     Dosage: 124 MILLIGRAMS TID
     Route: 061

REACTIONS (3)
  - Gait inability [Unknown]
  - Dysstasia [Unknown]
  - Joint instability [Unknown]
